FAERS Safety Report 11133273 (Version 20)
Quarter: 2017Q2

REPORT INFORMATION
  Report Type: Spontaneous
  Country: US (occurrence: US)
  Receive Date: 20150522
  Receipt Date: 20170525
  Transmission Date: 20170829
  Serious: Yes (Hospitalization, Other)
  Sender: FDA-Public Use
  Company Number: US-PFIZER INC-2014344351

PATIENT
  Age: 54 Year
  Sex: Female

DRUGS (47)
  1. ACCUNEB [Concomitant]
     Active Substance: ALBUTEROL SULFATE
     Indication: DYSPNOEA
     Dosage: 2.5 MG, AS NEEDED (2.5 MG EVERY 4 HOURS PRN)
  2. SYMBICORT [Concomitant]
     Active Substance: BUDESONIDE\FORMOTEROL FUMARATE DIHYDRATE
     Dosage: UNK UNK, 2X/DAY[BUDESONIDE 160 MCG/ACTUATION]/[FORMOTEROL HFA 4.5MCG/ACTUATION]INHALER; 2 INHALATION
  3. PREVACID [Concomitant]
     Active Substance: LANSOPRAZOLE
     Dosage: 30 MG, DAILY
     Route: 048
  4. AMITIZA [Concomitant]
     Active Substance: LUBIPROSTONE
     Dosage: 24 UG, 2X/DAY; ADMINISTER WITH FOOD
     Route: 048
  5. TIOTROPIUM [Concomitant]
     Active Substance: TIOTROPIUM
     Dosage: UNK UNK, DAILY (2.5 MCG/ACTUATION 2 INHALATIONS EVERY DAY)
  6. LOVASTIN [Concomitant]
     Active Substance: LOVASTATIN
     Dosage: UNK
  7. BACTRIM [Concomitant]
     Active Substance: SULFAMETHOXAZOLE\TRIMETHOPRIM
     Dosage: UNK
  8. FUROSEMIDE. [Concomitant]
     Active Substance: FUROSEMIDE
     Dosage: UNK
  9. PROAIR HFA [Concomitant]
     Active Substance: ALBUTEROL SULFATE
     Indication: DYSPNOEA
     Dosage: 180 UG, AS NEEDED (90 MCG/ACTUATION (PROAIR HFA) 180 MCG EVERY 6 HOURS PRN)
  10. ENULOSE [Concomitant]
     Active Substance: LACTULOSE
     Dosage: 30 ML, DAILY
     Route: 048
  11. BOSULIF [Suspect]
     Active Substance: BOSUTINIB MONOHYDRATE
     Dosage: UNK
  12. NORCO [Concomitant]
     Active Substance: ACETAMINOPHEN\HYDROCODONE BITARTRATE
     Indication: PAIN
     Dosage: UNK UNK, AS NEEDED [HYDROCODONE 7.5 MG]/[ ACETAMINOPHEN 325 MG] 1 TAB EVERY 6 HOURS PRN
  13. ONDANSETRON [Concomitant]
     Active Substance: ONDANSETRON
     Indication: VOMITING
  14. BOSULIF [Suspect]
     Active Substance: BOSUTINIB MONOHYDRATE
     Dosage: UNK
  15. CYMBALTA [Concomitant]
     Active Substance: DULOXETINE HYDROCHLORIDE
     Dosage: UNK
  16. MORPHINE [Concomitant]
     Active Substance: MORPHINE
     Dosage: UNK
  17. HYDROMORPHONE [Concomitant]
     Active Substance: HYDROMORPHONE
     Dosage: UNK
  18. FLUDROCORTISONE [Concomitant]
     Active Substance: FLUDROCORTISONE
     Dosage: 0.1 MG, DAILY
     Route: 048
  19. CORTEF [Concomitant]
     Active Substance: HYDROCORTISONE
     Dosage: 5 MG, 2X/DAY
     Route: 048
  20. INDERAL [Concomitant]
     Active Substance: PROPRANOLOL HYDROCHLORIDE
     Dosage: 80 MG, DAILY
     Route: 048
  21. BOSULIF [Suspect]
     Active Substance: BOSUTINIB MONOHYDRATE
     Dosage: 500 MG, 1X/DAY
     Route: 048
     Dates: start: 20130913
  22. INVEGA [Concomitant]
     Active Substance: PALIPERIDONE
     Dosage: 6 MG, 1X/DAY (6 MG EVERY MORNING; SWALLOW WHOLE; DO NOT CRUSH, CHEW, BREAK, DISSOLVE, OR CUT)
     Route: 048
  23. DEXAMETHASONE. [Concomitant]
     Active Substance: DEXAMETHASONE
     Dosage: UNK
  24. HYDROCORTISONE. [Concomitant]
     Active Substance: HYDROCORTISONE
     Dosage: UNK
  25. VITAMIN D [Concomitant]
     Active Substance: CHOLECALCIFEROL
     Dosage: 50000 IU, WEEKLY
     Route: 048
  26. NEXIUM [Concomitant]
     Active Substance: ESOMEPRAZOLE MAGNESIUM
     Dosage: UNK
  27. CALCIUM ACETATE. [Concomitant]
     Active Substance: CALCIUM ACETATE
     Dosage: UNK
  28. METHOCARBAMOL. [Concomitant]
     Active Substance: METHOCARBAMOL
     Dosage: 750 MG, AS NEEDED (750 MG 3 TIMES PER DAY. (AS NEEDED))
     Route: 048
  29. NICOTINE. [Concomitant]
     Active Substance: NICOTINE
     Dosage: 14 MG, 1X/DAY (14 MG EVERY 24 HOURS)
  30. ONDANSETRON [Concomitant]
     Active Substance: ONDANSETRON
     Indication: NAUSEA
     Dosage: 4 MG, AS NEEDED (4 MG EVERY 8 HOURS PRN)
     Route: 048
  31. BOSULIF [Suspect]
     Active Substance: BOSUTINIB MONOHYDRATE
     Dosage: 500 MG, DAILY
     Route: 048
     Dates: start: 20130910
  32. BOSULIF [Suspect]
     Active Substance: BOSUTINIB MONOHYDRATE
     Dosage: UNK
  33. PLAVIX [Concomitant]
     Active Substance: CLOPIDOGREL BISULFATE
     Dosage: 75 MG, DAILY
     Route: 048
  34. PREDNISONE. [Concomitant]
     Active Substance: PREDNISONE
     Dosage: 40 MG, DAILY (40MG DAILY/F. (RX: QS FOR 5 DAYS))
     Route: 048
  35. ROBAXIN [Concomitant]
     Active Substance: METHOCARBAMOL
     Dosage: UNK
  36. SINEQUAN [Concomitant]
     Active Substance: DOXEPIN HYDROCHLORIDE
     Dosage: 10 MG, 2X/DAY
     Route: 048
  37. MEVACOR [Concomitant]
     Active Substance: LOVASTATIN
     Dosage: 40 MG, DAILY
     Route: 048
  38. BOSULIF [Suspect]
     Active Substance: BOSUTINIB MONOHYDRATE
     Indication: CHRONIC MYELOID LEUKAEMIA
     Dosage: 500 MG, 1 TABLET, DAILY WITH FOOD OR A MEAL
     Dates: start: 20130718
  39. BOSULIF [Suspect]
     Active Substance: BOSUTINIB MONOHYDRATE
     Dosage: 500 MG,1 TABLET, DAILY
     Route: 048
     Dates: start: 20130923
  40. VESICARE [Concomitant]
     Active Substance: SOLIFENACIN SUCCINATE
     Dosage: 10 MG, DAILY
     Route: 048
  41. PROMETHAZINE [Concomitant]
     Active Substance: PROMETHAZINE\PROMETHAZINE HYDROCHLORIDE
     Dosage: UNK
  42. FLORINEF ACETATE [Concomitant]
     Active Substance: FLUDROCORTISONE ACETATE
     Dosage: UNK
  43. STOOL SOFTENER (DOCUSATE) [Concomitant]
     Active Substance: DOCUSATE
  44. ATIVAN [Concomitant]
     Active Substance: LORAZEPAM
     Dosage: 1 MG, AS NEEDED (1 MG EVERY DAY AS NEEDED)
     Route: 048
  45. MIRALAX [Concomitant]
     Active Substance: POLYETHYLENE GLYCOL 3350
     Dosage: 17 G, DAILY(17GRAMS EVERYDAY; MIX INTO 4-8 OZ. OF ANY HOT/COLD/ROOM TEMP. BEVERAGE AND DRINK IMMED.)
     Route: 048
  46. CIPROFLOXACIN. [Concomitant]
     Active Substance: CIPROFLOXACIN
     Dosage: UNK
  47. OMEPRAZOLE. [Concomitant]
     Active Substance: OMEPRAZOLE
     Dosage: UNK

REACTIONS (24)
  - Nausea [Unknown]
  - Pericardial effusion [Unknown]
  - Respiratory failure [Unknown]
  - Swelling [Unknown]
  - Bronchitis chronic [Unknown]
  - Headache [Unknown]
  - Muscular weakness [Unknown]
  - Foot fracture [Unknown]
  - Drug dose omission [Unknown]
  - Pneumonia [Unknown]
  - Viral infection [Unknown]
  - Malnutrition [Unknown]
  - Abdominal pain [Unknown]
  - Carotid artery stenosis [Unknown]
  - Spinal column stenosis [Unknown]
  - Sinusitis [Unknown]
  - Memory impairment [Unknown]
  - Chronic obstructive pulmonary disease [Unknown]
  - Lung disorder [Unknown]
  - Pulmonary oedema [Unknown]
  - Gastric ulcer haemorrhage [Unknown]
  - Dyspnoea [Unknown]
  - Vision blurred [Unknown]
  - Monoparesis [Unknown]

NARRATIVE: CASE EVENT DATE: 20141203
